FAERS Safety Report 25632143 (Version 1)
Quarter: 2025Q3

REPORT INFORMATION
  Report Type: Spontaneous
  Country: US (occurrence: None)
  Receive Date: 20250731
  Receipt Date: 20250731
  Transmission Date: 20251020
  Serious: Yes (Life-Threatening, Other)
  Sender: FDA-CTU
  Company Number: None

PATIENT
  Age: 60 Year
  Sex: Male
  Weight: 91 kg

DRUGS (6)
  1. CARBAMAZEPINE [Suspect]
     Active Substance: CARBAMAZEPINE
     Indication: Mood swings
     Dosage: FREQUENCY : TWICE A DAY;?
     Route: 048
  2. gabapentin 900mg BID [Concomitant]
  3. haloperidol 10mg at HS [Concomitant]
  4. LOSARTAN [Concomitant]
     Active Substance: LOSARTAN
  5. sertraline 150mg at HS [Concomitant]
  6. trazodone 250mg at HS [Concomitant]

REACTIONS (1)
  - Inappropriate antidiuretic hormone secretion [None]

NARRATIVE: CASE EVENT DATE: 20240319
